FAERS Safety Report 10969399 (Version 1)
Quarter: 2015Q1

REPORT INFORMATION
  Report Type: Spontaneous
  Country: US (occurrence: US)
  Receive Date: 20150331
  Receipt Date: 20150331
  Transmission Date: 20150721
  Serious: Yes (Other)
  Sender: FDA-Public Use
  Company Number: US-AMGEN-USASP2015029237

PATIENT
  Sex: Female

DRUGS (1)
  1. ENBREL [Suspect]
     Active Substance: ETANERCEPT
     Indication: PRODUCT USED FOR UNKNOWN INDICATION
     Dosage: UNK UNK, UNK
     Route: 065
     Dates: start: 1999

REACTIONS (6)
  - Neoplasm [Unknown]
  - Hypersensitivity [Unknown]
  - Colon cancer [Unknown]
  - Surgery [Unknown]
  - Carcinoembryonic antigen increased [Unknown]
  - Urticaria [Unknown]
